FAERS Safety Report 5558086-7 (Version None)
Quarter: 2007Q4

REPORT INFORMATION
  Report Type: 
  Country: None (occurrence: None)
  Receive Date: 20071214
  Receipt Date: 20071211
  Transmission Date: 20080405
  Serious: Yes (Hospitalization, Other)
  Sender: FDA-Public Use
  Company Number: AT-BRISTOL-MYERS SQUIBB COMPANY-13988100

PATIENT
  Age: 58 Year
  Sex: Male
  Weight: 56 kg

DRUGS (4)
  1. ABILIFY [Suspect]
     Indication: SCHIZOPHRENIA
     Route: 048
     Dates: start: 20071015
  2. TRITTICO [Suspect]
     Indication: SLEEP DISORDER
     Route: 048
     Dates: start: 20071013
  3. METHOTREXATE [Concomitant]
     Indication: RHEUMATOID ARTHRITIS
     Route: 048
  4. ACTONEL [Concomitant]
     Indication: OSTEOPOROSIS

REACTIONS (1)
  - ANGIOEDEMA [None]
